FAERS Safety Report 9057210 (Version 1)
Quarter: 2013Q1

REPORT INFORMATION
  Report Type: Other
  Country: GB (occurrence: GB)
  Receive Date: 20130131
  Receipt Date: 20130131
  Transmission Date: 20140127
  Serious: Yes (Other)
  Sender: FDA-Public Use
  Company Number: GB-WATSON-2013-01356

PATIENT
  Age: 85 Year
  Sex: Male
  Weight: 57 kg

DRUGS (7)
  1. TRAMADOL HYDROCHLORIDE (UNKNOWN) [Suspect]
     Indication: ANALGESIC THERAPY
     Dosage: 50MG TWO DOSES OF 50 MG TAKEN EVERY 6 TO 8 HOURS
     Route: 048
     Dates: start: 20111108, end: 20130102
  2. OMEPRAZOLE [Concomitant]
     Indication: DYSPEPSIA
     Dosage: 1 DF DOSAGE FORM  STILL ON
     Route: 065
  3. BUTRANS                            /00444001/ [Concomitant]
     Indication: ANALGESIC THERAPY
     Dosage: 1 DF, DAILY  STILL ON MEDICATION   PATCH
     Dates: start: 20121004
  4. PENTAZOCINE [Concomitant]
     Indication: ANALGESIC THERAPY
     Dosage: 50 MG, Q6H  STILL ON MEDICATION. TWO 25 MG EVERY SIX HOURS
     Route: 048
     Dates: start: 20121210
  5. ASPIRIN [Concomitant]
     Indication: PRODUCT USED FOR UNKNOWN INDICATION
     Dosage: 75 MG, DAILY  STILL ON MEDICATION
     Route: 048
     Dates: start: 20120423
  6. RAMIPRIL [Concomitant]
     Indication: HYPERTENSION
     Dosage: 1.25 MG, BID  STILL ON MEDICATION
     Route: 048
     Dates: start: 20100817
  7. FINASTERIDE [Concomitant]
     Indication: BENIGN PROSTATIC HYPERPLASIA
     Dosage: 5 MG, DAILY  STILL ON MEDICATION
     Route: 048
     Dates: start: 20100817

REACTIONS (4)
  - Lymphocyte count decreased [Not Recovered/Not Resolved]
  - Red blood cell count decreased [Unknown]
  - Red blood cell analysis abnormal [Unknown]
  - Blood urea increased [Unknown]
